FAERS Safety Report 4810288-0 (Version None)
Quarter: 2005Q4

REPORT INFORMATION
  Report Type: 
  Country: None (occurrence: None)
  Receive Date: 20051024
  Receipt Date: 20051018
  Transmission Date: 20060501
  Serious: Yes (Hospitalization, Other)
  Sender: FDA-Public Use
  Company Number: 200510859BVD

PATIENT
  Age: 71 Year
  Sex: Male
  Weight: 80 kg

DRUGS (1)
  1. CIPROFLOXACIN [Suspect]
     Indication: RESPIRATORY TRACT INFECTION

REACTIONS (8)
  - APLASTIC ANAEMIA [None]
  - BLOOD CREATININE INCREASED [None]
  - GASTRIC MUCOSAL LESION [None]
  - HYPERSENSITIVITY [None]
  - INFECTION [None]
  - MYELOPATHY [None]
  - THERAPEUTIC AGENT TOXICITY [None]
  - ULTRASOUND KIDNEY ABNORMAL [None]
